FAERS Safety Report 6595403-3 (Version None)
Quarter: 2010Q1

REPORT INFORMATION
  Report Type: 
  Country: None (occurrence: None)
  Receive Date: 20100223
  Receipt Date: 20100222
  Transmission Date: 20100710
  Serious: Yes (Other)
  Sender: FDA-Public Use
  Company Number: US-RB-003089-10

PATIENT
  Age: 75 Year
  Sex: Female

DRUGS (1)
  1. MUCINEX D [Suspect]
     Dosage: TOOK ONE PILL
     Route: 048
     Dates: start: 20100208

REACTIONS (1)
  - BLOOD PRESSURE INCREASED [None]
